FAERS Safety Report 24348022 (Version 1)
Quarter: 2024Q3

REPORT INFORMATION
  Report Type: Spontaneous
  Country: US (occurrence: US)
  Receive Date: 20240923
  Receipt Date: 20240923
  Transmission Date: 20241016
  Serious: No
  Sender: NOVITIUM PHARMA
  Company Number: US-NOVITIUMPHARMA-2024USNVP01930

PATIENT
  Sex: Male

DRUGS (3)
  1. BISOPROLOL FUMARATE [Suspect]
     Active Substance: BISOPROLOL FUMARATE
     Indication: Hypertension
     Dosage: 1ST BOTTLE
     Dates: start: 20240802
  2. BISOPROLOL FUMARATE [Suspect]
     Active Substance: BISOPROLOL FUMARATE
     Dates: start: 20240802
  3. BISOPROLOL FUMARATE [Suspect]
     Active Substance: BISOPROLOL FUMARATE
     Dosage: DRUG FIRST DISPENSED
     Dates: start: 20230508

REACTIONS (5)
  - Product solubility abnormal [Unknown]
  - Dysgeusia [Unknown]
  - Product coating issue [Unknown]
  - Product physical issue [Unknown]
  - Product dispensing error [Unknown]
